FAERS Safety Report 22642677 (Version 1)
Quarter: 2023Q2

REPORT INFORMATION
  Report Type: Other
  Country: US (occurrence: None)
  Receive Date: 20230627
  Receipt Date: 20230627
  Transmission Date: 20230721
  Serious: Yes (Hospitalization)
  Sender: FDA-Public Use
  Company Number: US-Saptalis Pharmaceuticals,LLC-000359

PATIENT
  Age: 69 Year
  Sex: Male

DRUGS (3)
  1. POTASSIUM CHLORIDE [Suspect]
     Active Substance: POTASSIUM CHLORIDE
     Indication: Blood potassium decreased
     Route: 042
  2. NITROGLYCERIN [Concomitant]
     Active Substance: NITROGLYCERIN
     Indication: Chest pain
     Dosage: TWO DOSES OF SUBLINGUAL NITROGLYCERIN 0.4 MG
  3. POTASSIUM CHLORIDE [Suspect]
     Active Substance: POTASSIUM CHLORIDE
     Indication: Blood potassium abnormal
     Dosage: 10 MEQ/H
     Route: 042

REACTIONS (3)
  - Phlebitis [Recovered/Resolved]
  - Device placement issue [Recovered/Resolved]
  - Chest pain [Recovered/Resolved]
